FAERS Safety Report 18062076 (Version 11)
Quarter: 2021Q4

REPORT INFORMATION
  Report Type: Spontaneous
  Country: JP (occurrence: JP)
  Receive Date: 20200723
  Receipt Date: 20211124
  Transmission Date: 20220303
  Serious: Yes (Hospitalization, Disabling, Other)
  Sender: FDA-Public Use
  Company Number: JP-BRISTOL-MYERS SQUIBB COMPANY-BMS-2020-058347

PATIENT
  Age: 71 Year
  Sex: Female
  Weight: 44 kg

DRUGS (11)
  1. YERVOY [Suspect]
     Active Substance: IPILIMUMAB
     Indication: Malignant melanoma
     Dosage: 3 MILLIGRAM/KILOGRAM, Q3WK,ONE TIME DOSE
     Route: 041
     Dates: start: 20200623, end: 20200909
  2. OPDIVO [Suspect]
     Active Substance: NIVOLUMAB
     Indication: Malignant melanoma
     Dosage: 80 MILLIGRAM, Q3WK, ONE TIME DOSE
     Route: 041
     Dates: start: 20200623, end: 20200909
  3. TAFINLAR [Suspect]
     Active Substance: DABRAFENIB MESYLATE
     Indication: Product used for unknown indication
     Dosage: UNK
     Route: 048
     Dates: end: 20201026
  4. MEKINIST [Suspect]
     Active Substance: TRAMETINIB DIMETHYL SULFOXIDE
     Indication: Product used for unknown indication
     Dosage: UNK
     Route: 065
     Dates: end: 20201026
  5. BRAFTOVI [Suspect]
     Active Substance: ENCORAFENIB
     Indication: Malignant melanoma
     Dosage: 450 MILLIGRAM, QD
     Route: 048
     Dates: end: 20210123
  6. MEKTOVI [Suspect]
     Active Substance: BINIMETINIB
     Indication: Malignant melanoma
     Dosage: 45 MILLIGRAM, BID
     Route: 048
     Dates: end: 20210123
  7. MINODRONIC ACID [Suspect]
     Active Substance: MINODRONIC ACID
     Indication: Osteoporosis
     Dosage: UNK
     Route: 048
  8. JANUVIA [Concomitant]
     Active Substance: SITAGLIPTIN PHOSPHATE
     Indication: Product used for unknown indication
     Dosage: UNK
     Route: 065
  9. FAMOTIDINE [Concomitant]
     Active Substance: FAMOTIDINE
     Indication: Product used for unknown indication
     Dosage: UNK
     Route: 048
  10. LINAGLIPTIN [Concomitant]
     Active Substance: LINAGLIPTIN
     Indication: Product used for unknown indication
     Dosage: UNK
     Route: 048
  11. REPAGLINIDE [Concomitant]
     Active Substance: REPAGLINIDE
     Indication: Product used for unknown indication
     Dosage: UNK
     Route: 048

REACTIONS (27)
  - Encephalitis autoimmune [Recovered/Resolved with Sequelae]
  - Pyrexia [Unknown]
  - Adrenal insufficiency [Recovered/Resolved]
  - Erythema multiforme [Unknown]
  - Encephalitis [Unknown]
  - Hyperthyroidism [Recovering/Resolving]
  - Renal impairment [Unknown]
  - Dyskinesia [Unknown]
  - Altered state of consciousness [Unknown]
  - Hypothyroidism [Recovered/Resolved]
  - Asterixis [Unknown]
  - Type 2 diabetes mellitus [Recovering/Resolving]
  - Hyperhidrosis [Not Recovered/Not Resolved]
  - Palpitations [Not Recovered/Not Resolved]
  - Rash papular [Recovering/Resolving]
  - Liver disorder [Not Recovered/Not Resolved]
  - C-reactive protein increased [Unknown]
  - Blood lactate dehydrogenase increased [Unknown]
  - Blood thyroid stimulating hormone decreased [Unknown]
  - Muscular weakness [Unknown]
  - Swelling face [Unknown]
  - Nausea [Recovering/Resolving]
  - Decreased appetite [Unknown]
  - Diarrhoea [Recovering/Resolving]
  - Dysphagia [Unknown]
  - Adrenocorticotropic hormone deficiency [Recovering/Resolving]
  - Thyroiditis [Recovering/Resolving]

NARRATIVE: CASE EVENT DATE: 20200701
